FAERS Safety Report 22222761 (Version 2)
Quarter: 2024Q4

REPORT INFORMATION
  Report Type: Spontaneous
  Country: US (occurrence: US)
  Receive Date: 20230418
  Receipt Date: 20241212
  Transmission Date: 20250114
  Serious: No
  Sender: SANOFI AVENTIS
  Company Number: US-SA-SAC20230417000250

PATIENT
  Age: 37 Year
  Sex: Female
  Weight: 100 kg

DRUGS (2)
  1. DUPIXENT [Suspect]
     Active Substance: DUPILUMAB
     Indication: Dermatitis atopic
     Dosage: 300 MG, OTHER
     Route: 058
     Dates: start: 202301
  2. DUPIXENT [Suspect]
     Active Substance: DUPILUMAB
     Dosage: 300 MG, QOW
     Route: 058

REACTIONS (6)
  - Dermatitis [Unknown]
  - Condition aggravated [Unknown]
  - Erythema [Unknown]
  - Rash macular [Unknown]
  - Therapeutic response shortened [Unknown]
  - Surgery [Unknown]

NARRATIVE: CASE EVENT DATE: 20240101
